FAERS Safety Report 20075310 (Version 1)
Quarter: 2021Q4

REPORT INFORMATION
  Report Type: Spontaneous
  Country: US (occurrence: None)
  Receive Date: 20211116
  Receipt Date: 20211116
  Transmission Date: 20220303
  Serious: Yes (Hospitalization)
  Sender: FDA-Public Use
  Company Number: None

PATIENT
  Age: 71 Year
  Sex: Female
  Weight: 92.7 kg

DRUGS (15)
  1. CASIRIVIMAB\IMDEVIMAB [Suspect]
     Active Substance: CASIRIVIMAB\IMDEVIMAB
     Indication: COVID-19
     Dosage: FREQUENCY : ONCE;?
     Route: 042
     Dates: start: 20211109, end: 20211109
  2. DEXAMETHASONE [Concomitant]
     Active Substance: DEXAMETHASONE
  3. CEFTRIAXONE [Concomitant]
     Active Substance: CEFTRIAXONE
  4. INSULIN NOS [Concomitant]
     Active Substance: INSULIN NOS
  5. ENOXAPARIN [Concomitant]
     Active Substance: ENOXAPARIN
  6. FUROSEMIDE [Concomitant]
     Active Substance: FUROSEMIDE
  7. AZITHROMYCIN [Concomitant]
     Active Substance: AZITHROMYCIN
  8. PRAVASTATIN [Concomitant]
     Active Substance: PRAVASTATIN
  9. LISINOPRIL [Concomitant]
     Active Substance: LISINOPRIL
     Dates: start: 20210924
  10. ALBUTEROL [Concomitant]
     Active Substance: ALBUTEROL
     Dates: start: 20210818
  11. PREDNISONE [Concomitant]
     Active Substance: PREDNISONE
     Dates: start: 20211004
  12. ACETAMINOPHEN [Concomitant]
     Active Substance: ACETAMINOPHEN
     Dates: start: 20211109
  13. ONDANSETRON [Concomitant]
     Active Substance: ONDANSETRON
     Dates: start: 20211109
  14. CYCLOBENZAPRINE [Concomitant]
     Active Substance: CYCLOBENZAPRINE
     Dates: start: 20210803
  15. CIPROFLOXACIN [Concomitant]
     Active Substance: CIPROFLOXACIN
     Dates: start: 20211004

REACTIONS (5)
  - Dyspnoea [None]
  - Oropharyngeal pain [None]
  - Myalgia [None]
  - Headache [None]
  - Lung infiltration [None]

NARRATIVE: CASE EVENT DATE: 20211114
